FAERS Safety Report 7887847-4 (Version None)
Quarter: 2011Q4

REPORT INFORMATION
  Report Type: 
  Country: None (occurrence: None)
  Receive Date: 20111103
  Receipt Date: 20111024
  Transmission Date: 20120403
  Serious: Yes (Hospitalization)
  Sender: FDA-Public Use
  Company Number: JP-AMGEN-JPNSP2010008657

PATIENT
  Age: 62 Year
  Sex: Male
  Weight: 57.1 kg

DRUGS (5)
  1. RIMATIL [Suspect]
     Indication: RHEUMATOID ARTHRITIS
     Dosage: 100 MG, BID
     Dates: end: 20101102
  2. LOXONIN                            /00890702/ [Concomitant]
     Dosage: UNK
     Route: 048
  3. HUMIRA [Suspect]
     Indication: RHEUMATOID ARTHRITIS
     Dosage: UNK
     Route: 058
     Dates: start: 20081127, end: 20100628
  4. ENBREL [Suspect]
     Indication: RHEUMATOID ARTHRITIS
     Dosage: 25 MG, 2X/WEEK
     Route: 058
     Dates: start: 20100629, end: 20101102
  5. PREDNISOLONE [Concomitant]
     Dosage: UNK
     Route: 048

REACTIONS (6)
  - LOSS OF CONSCIOUSNESS [None]
  - INJURY [None]
  - APLASTIC ANAEMIA [None]
  - PYREXIA [None]
  - BIRTH MARK [None]
  - PANCYTOPENIA [None]
